FAERS Safety Report 5986982-5 (Version None)
Quarter: 2008Q4

REPORT INFORMATION
  Report Type: 
  Country: None (occurrence: None)
  Receive Date: 20081209
  Receipt Date: 20081205
  Transmission Date: 20090506
  Serious: Yes (Hospitalization)
  Sender: FDA-Public Use
  Company Number: A0725140A

PATIENT
  Age: 58 Year
  Sex: Female
  Weight: 130 kg

DRUGS (3)
  1. AVANDIA [Suspect]
     Dosage: 8MG PER DAY
     Route: 065
     Dates: start: 20050427, end: 20051019
  2. METFORMIN HCL [Concomitant]
     Dates: start: 20000101, end: 20080805
  3. GLUCOTROL [Concomitant]
     Dates: start: 20000101, end: 20050101

REACTIONS (2)
  - CARDIAC FAILURE CONGESTIVE [None]
  - HEART INJURY [None]
